FAERS Safety Report 9387590 (Version 1)
Quarter: 2013Q3

REPORT INFORMATION
  Report Type: Spontaneous
  Country: US (occurrence: None)
  Receive Date: 20130702
  Receipt Date: 20130702
  Transmission Date: 20140515
  Serious: Yes (Death, Hospitalization)
  Sender: FDA-Public Use
  Company Number: UTC-034836

PATIENT
  Age: 29 Year
  Sex: Female
  Weight: 40 kg

DRUGS (2)
  1. TYVASO (6 MICROGRAM, AEROSOL FOR INHALATION) (TREPROSTINIL SODIUM) [Suspect]
     Dosage: 18 TO 54 MICROGRAMS (4 IN 1 D), INHALATION
     Dates: start: 20130604
  2. FLOLAN (EPOPROSTENOL) (UNKNOWN) [Concomitant]

REACTIONS (6)
  - Vomiting [None]
  - Blood pressure decreased [None]
  - Chest pain [None]
  - Cyanosis [None]
  - Cardio-respiratory arrest [None]
  - Mydriasis [None]
